FAERS Safety Report 11615154 (Version 3)
Quarter: 2016Q1

REPORT INFORMATION
  Report Type: Spontaneous
  Country: US (occurrence: US)
  Receive Date: 20151009
  Receipt Date: 20160201
  Transmission Date: 20160525
  Serious: No
  Sender: FDA-Public Use
  Company Number: US-PFIZER INC-2015321373

PATIENT
  Age: 62 Year
  Sex: Female
  Weight: 82 kg

DRUGS (5)
  1. IBRANCE [Suspect]
     Active Substance: PALBOCICLIB
     Indication: BREAST CANCER METASTATIC
     Dosage: 125 MG, UNK
     Dates: start: 2015
  2. IBRANCE [Suspect]
     Active Substance: PALBOCICLIB
     Dosage: 75 MG, CYCLIC (SEVEN DAYS A WEEK TIME, 3 WEEKS WITH ONE WEEK OFF)
  3. FASLODEX [Suspect]
     Active Substance: FULVESTRANT
     Dosage: UNK
  4. IBRANCE [Suspect]
     Active Substance: PALBOCICLIB
     Dosage: UNK
     Dates: start: 201508
  5. IBRANCE [Suspect]
     Active Substance: PALBOCICLIB
     Dosage: 125 MG, UNK

REACTIONS (16)
  - Nausea [Unknown]
  - Hepatic enzyme increased [Unknown]
  - Blood count abnormal [Unknown]
  - Dermatitis [Unknown]
  - Rash [Unknown]
  - Nasopharyngitis [Unknown]
  - Product use issue [Unknown]
  - Skin disorder [Unknown]
  - Headache [Unknown]
  - Malaise [Unknown]
  - Pruritus [Unknown]
  - Dizziness [Unknown]
  - Disturbance in attention [Unknown]
  - Tremor [Unknown]
  - Product packaging issue [Unknown]
  - Bronchitis [Unknown]

NARRATIVE: CASE EVENT DATE: 2015
